FAERS Safety Report 5419137-3 (Version None)
Quarter: 2007Q3

REPORT INFORMATION
  Report Type: 
  Country: None (occurrence: None)
  Receive Date: 20070820
  Receipt Date: 20070813
  Transmission Date: 20080115
  Serious: Yes (Hospitalization, Other)
  Sender: FDA-Public Use
  Company Number: PHBS2007BE12766

PATIENT
  Age: 53 Year
  Sex: Female

DRUGS (7)
  1. ZOMETA [Suspect]
     Indication: METASTASES TO BONE
     Dosage: 4 MG EVERY 3 MONTHS
     Dates: start: 20031001, end: 20070301
  2. FLUOROURACIL [Concomitant]
  3. EPIRUBICIN [Concomitant]
  4. NOLVADEX [Concomitant]
     Dosage: 20 MG/DAY
  5. ELTHYRONE [Concomitant]
     Dosage: 100 UG/J
  6. RADIOTHERAPY [Concomitant]
  7. CYCLOPHOSPHAMIDE [Concomitant]

REACTIONS (5)
  - LYMPHADENECTOMY [None]
  - OEDEMA MUCOSAL [None]
  - OSTEONECROSIS [None]
  - SURGERY [None]
  - TOOTH EXTRACTION [None]
